FAERS Safety Report 11797402 (Version 2)
Quarter: 2025Q4

REPORT INFORMATION
  Report Type: Spontaneous
  Country: EU (occurrence: EU)
  Receive Date: 20151203
  Receipt Date: 20251230
  Transmission Date: 20260118
  Serious: Yes (Congenital Anomaly, Other)
  Sender: SANOFI AVENTIS
  Company Number: None

PATIENT
  Age: 1 Day
  Sex: Female
  Weight: 1.56 kg

DRUGS (7)
  1. ARAVA [Suspect]
     Active Substance: LEFLUNOMIDE
     Indication: Maternal exposure timing unspecified
     Dosage: 20 MG,QD (0. - 5.4. GESTATIONAL WEEK)
     Route: 064
     Dates: start: 20141004, end: 20141112
  2. PREDNISOLONE [Suspect]
     Active Substance: PREDNISOLONE
     Indication: Maternal exposure timing unspecified
     Dosage: 10 MG, QD
     Route: 064
     Dates: start: 20141004, end: 20150423
  3. PREDNISONE [Suspect]
     Active Substance: PREDNISONE
     Indication: Maternal exposure timing unspecified
     Dosage: 5 MG,QD
     Route: 064
     Dates: start: 20150424, end: 20150530
  4. ACTIVATED CHARCOAL [Concomitant]
     Active Substance: ACTIVATED CHARCOAL
     Indication: Detoxification
     Dosage: 20 G,QD (20 [G/D ]/ ONLY 3 DAYS, BECAUSE SHE DID NOT TOLERATE IT.)
     Route: 064
     Dates: start: 20141129, end: 20141212
  5. CHOLESTYRAMINE [Concomitant]
     Active Substance: CHOLESTYRAMINE
     Indication: Detoxification
     Dosage: IN WEEK 11: LEFLUNOMIDE CONCENTRATION WAS 0.01 MG/L
     Route: 064
  6. CYANOCOBALAMIN;FOLIC ACID;POTASSIUM IODIDE [Concomitant]
     Indication: Prophylaxis of neural tube defect
     Dosage: .4 MG,QD
     Route: 064
  7. FOLIC ACID [Concomitant]
     Active Substance: FOLIC ACID
     Indication: Prophylaxis of neural tube defect
     Dosage: 0.4 MG, QD (6.2 - 12. GESTATIONAL WEEK)
     Route: 064

REACTIONS (6)
  - Oesophageal atresia [Recovered/Resolved with Sequelae]
  - Foetal exposure during pregnancy [Unknown]
  - Tracheo-oesophageal fistula [Recovered/Resolved with Sequelae]
  - Intraventricular haemorrhage neonatal [Unknown]
  - Small for dates baby [Recovering/Resolving]
  - Premature baby [Recovering/Resolving]

NARRATIVE: CASE EVENT DATE: 20150530
